FAERS Safety Report 13429098 (Version 4)
Quarter: 2017Q2

REPORT INFORMATION
  Report Type: Spontaneous
  Country: CZ (occurrence: CZ)
  Receive Date: 20170411
  Receipt Date: 20170511
  Transmission Date: 20170830
  Serious: Yes (Death, Other)
  Sender: FDA-Public Use
  Company Number: SK-ELI_LILLY_AND_COMPANY-CZ201704002625

PATIENT
  Age: 67 Year
  Sex: Male

DRUGS (12)
  1. ESSENTIALE N                       /00722001/ [Concomitant]
     Dosage: 300 MG, UNKNOWN
     Route: 048
  2. CYRAMZA [Suspect]
     Active Substance: RAMUCIRUMAB
     Indication: GASTRIC CANCER
     Dosage: 600 MG, CYCLICAL
     Route: 042
     Dates: start: 20160913, end: 20170328
  3. MILURIT [Concomitant]
     Active Substance: ALLOPURINOL
  4. DEXAMETASON                        /00016001/ [Concomitant]
     Indication: PREMEDICATION
  5. MAGNOSOLV [Concomitant]
     Dosage: 365 MG, UNKNOWN
     Route: 048
  6. PACLITAXEL. [Concomitant]
     Active Substance: PACLITAXEL
     Indication: GASTRIC CANCER
     Dosage: UNK, CYCLICAL
     Route: 042
     Dates: start: 201609
  7. GODASAL [Concomitant]
     Active Substance: ASPIRIN\GLYCINE
  8. LOSEPRAZOL [Concomitant]
     Active Substance: OMEPRAZOLE
  9. HELICID                            /00661201/ [Concomitant]
     Dosage: 20 MG, UNKNOWN
     Route: 048
  10. PACLITAXEL. [Concomitant]
     Active Substance: PACLITAXEL
     Dosage: UNK, UNKNOWN
     Route: 042
     Dates: start: 20170328
  11. TWYNSTA [Concomitant]
     Active Substance: AMLODIPINE BESYLATE\TELMISARTAN
     Indication: HYPERTENSION
     Dosage: UNK, OTHER
     Route: 048
  12. DITHIADEN [Concomitant]
     Active Substance: BISULEPIN
     Indication: PREMEDICATION

REACTIONS (9)
  - Malignant neoplasm progression [Fatal]
  - Peritonitis [Fatal]
  - Leukocytosis [Unknown]
  - Constipation [Unknown]
  - Circulatory collapse [Fatal]
  - Small intestinal perforation [Fatal]
  - Neurotoxicity [Unknown]
  - Septic shock [Fatal]
  - Abdominal pain [Unknown]

NARRATIVE: CASE EVENT DATE: 20170404
